FAERS Safety Report 24147056 (Version 1)
Quarter: 2024Q3

REPORT INFORMATION
  Report Type: Spontaneous
  Country: CA (occurrence: CA)
  Receive Date: 20240729
  Receipt Date: 20240729
  Transmission Date: 20241016
  Serious: Yes (Hospitalization)
  Sender: Atnahs Healthcare
  Company Number: CA-MLMSERVICE-20240705-PI124196-00233-1

PATIENT
  Age: 7 Year
  Sex: Male

DRUGS (2)
  1. NAPROXEN [Suspect]
     Active Substance: NAPROXEN
     Indication: Juvenile idiopathic arthritis
  2. ADVIL [Concomitant]
     Active Substance: IBUPROFEN\IBUPROFEN SODIUM
     Indication: Arthralgia
     Dosage: 3X/DAY FOR THE PAST 4?6 WEEKS

REACTIONS (3)
  - Microcytic anaemia [Recovering/Resolving]
  - Iron deficiency [Recovering/Resolving]
  - Gastrointestinal haemorrhage [Unknown]
